FAERS Safety Report 8774403 (Version 2)
Quarter: 2013Q1

REPORT INFORMATION
  Report Type: Spontaneous
  Country: US (occurrence: US)
  Receive Date: 20120907
  Receipt Date: 20130204
  Transmission Date: 20140127
  Serious: Yes (Life-Threatening, Hospitalization, Congenital Anomaly, Other)
  Sender: FDA-Public Use
  Company Number: US-PFIZER INC-2012218948

PATIENT
  Sex: Female
  Weight: 4.13 kg

DRUGS (9)
  1. EFFEXOR [Suspect]
     Indication: DEPRESSION
     Dosage: UNK
     Route: 064
  2. EFFEXOR XR [Suspect]
     Indication: DEPRESSION
     Dosage: 75 MG, UNK
     Route: 064
     Dates: start: 20040316
  3. PRECARE CONCEIVE [Concomitant]
     Dosage: UNK
     Route: 064
     Dates: start: 20040802
  4. PROCHLORPERAZINE [Concomitant]
     Dosage: 10 MG, UNK
     Route: 064
     Dates: start: 20040710
  5. PROCHLORPERAZINE [Concomitant]
     Dosage: 5 MG, UNK
     Route: 064
     Dates: start: 20040731
  6. LEVOTHYROXINE [Concomitant]
     Indication: HYPOTHYROIDISM
     Dosage: 25 UG, UNK
     Route: 064
     Dates: start: 20041006
  7. LEVOTHYROXINE [Concomitant]
     Dosage: 50 UG, UNK
     Route: 064
     Dates: start: 20041119
  8. SYNTHROID [Concomitant]
     Indication: HYPOTHYROIDISM
     Dosage: 0.05 MG, 1X/DAY
     Route: 064
  9. PRENATAL VITAMINS [Concomitant]
     Dosage: UNK
     Route: 064

REACTIONS (2)
  - Maternal exposure timing unspecified [Unknown]
  - Craniosynostosis [Unknown]
